FAERS Safety Report 15428005 (Version 3)
Quarter: 2018Q4

REPORT INFORMATION
  Report Type: Spontaneous
  Country: BR (occurrence: BR)
  Receive Date: 20180926
  Receipt Date: 20181207
  Transmission Date: 20190204
  Serious: Yes (Hospitalization, Other)
  Sender: FDA-Public Use
  Company Number: BR-AMGEN-BRASP2018132013

PATIENT
  Age: 12 Year
  Sex: Female

DRUGS (1)
  1. ENBREL [Suspect]
     Active Substance: ETANERCEPT
     Indication: PSORIASIS
     Dosage: 50 MG, WEEKLY (ONE SYRINGE PER WEEK)
     Route: 065
     Dates: start: 201807

REACTIONS (6)
  - Product use issue [Unknown]
  - Infection [Unknown]
  - Oropharyngeal pain [Unknown]
  - Drug ineffective [Unknown]
  - Intentional product misuse [Unknown]
  - Psoriasis [Not Recovered/Not Resolved]
